FAERS Safety Report 18028763 (Version 6)
Quarter: 2020Q4

REPORT INFORMATION
  Report Type: Spontaneous
  Country: JP (occurrence: JP)
  Receive Date: 20200715
  Receipt Date: 20201203
  Transmission Date: 20210113
  Serious: Yes (Hospitalization, Other)
  Sender: FDA-Public Use
  Company Number: JP-SUNOVION-2020DSP007704

PATIENT
  Age: 21 Year
  Sex: Female

DRUGS (14)
  1. NEXIUM [Concomitant]
     Active Substance: ESOMEPRAZOLE MAGNESIUM
     Dosage: 10 MG, QD
     Route: 048
  2. WYPAX [Concomitant]
     Active Substance: LORAZEPAM
     Dosage: 0.5 MG, BID
     Route: 048
  3. LUNESTA [Concomitant]
     Active Substance: ESZOPICLONE
     Dosage: 2 MG, QD
     Route: 048
     Dates: start: 20180116
  4. ABILIFY [Concomitant]
     Active Substance: ARIPIPRAZOLE
     Dosage: 3 MG, QD
     Route: 048
     Dates: end: 20200613
  5. LONASEN [Suspect]
     Active Substance: BLONANSERIN
     Indication: SCHIZOPHRENIA
     Dosage: 8 MG, BID
     Route: 048
     Dates: start: 20200530
  6. HIBERNA [Concomitant]
     Active Substance: PROMETHAZINE HYDROCHLORIDE
     Dosage: 25 MG, QD
     Route: 048
     Dates: start: 20200725
  7. LATUDA [Suspect]
     Active Substance: LURASIDONE HYDROCHLORIDE
     Dosage: 40 MG, QD
     Route: 048
     Dates: start: 20200620
  8. LATUDA [Suspect]
     Active Substance: LURASIDONE HYDROCHLORIDE
     Dosage: 20 MG, QD
     Route: 048
     Dates: end: 20201013
  9. AKINETON [Suspect]
     Active Substance: BIPERIDEN HYDROCHLORIDE
     Indication: AKATHISIA
     Dosage: 1 MG, TID
     Route: 048
     Dates: start: 20200703
  10. LEXAPRO [Concomitant]
     Active Substance: ESCITALOPRAM OXALATE
     Dosage: 20 MG, QD
     Route: 048
  11. ABILIFY [Concomitant]
     Active Substance: ARIPIPRAZOLE
     Dosage: 12 MG, QD
     Route: 048
     Dates: start: 20190712, end: 20200124
  12. LATUDA [Suspect]
     Active Substance: LURASIDONE HYDROCHLORIDE
     Indication: SCHIZOPHRENIA
     Dosage: 20 MG, QD
     Route: 048
     Dates: start: 20200613, end: 20200619
  13. HIRNAMIN [Concomitant]
     Active Substance: LEVOMEPROMAZINE
     Dosage: UNK
     Route: 065
     Dates: start: 20200702
  14. ABILIFY [Concomitant]
     Active Substance: ARIPIPRAZOLE
     Indication: SCHIZOPHRENIA
     Dosage: 6 MG, QD
     Route: 048

REACTIONS (12)
  - Somnolence [Unknown]
  - Intentional underdose [Unknown]
  - Schizophrenia [Recovered/Resolved]
  - Off label use [Unknown]
  - Akathisia [Recovered/Resolved]
  - Nausea [Recovered/Resolved]
  - Hyperphagia [Unknown]
  - Nausea [Unknown]
  - Akathisia [Recovered/Resolved]
  - Restlessness [Unknown]
  - Screaming [Unknown]
  - Nausea [Unknown]

NARRATIVE: CASE EVENT DATE: 20200627
